FAERS Safety Report 15246569 (Version 1)
Quarter: 2018Q3

REPORT INFORMATION
  Report Type: Spontaneous
  Country: US (occurrence: US)
  Receive Date: 20180806
  Receipt Date: 20180806
  Transmission Date: 20181010
  Serious: No
  Sender: FDA-Public Use
  Company Number: US-ACTELION-A-NJ2018-176926

PATIENT
  Age: 69 Year
  Sex: Female

DRUGS (2)
  1. TARGRETIN [Concomitant]
     Active Substance: BEXAROTENE
  2. VALCHLOR [Suspect]
     Active Substance: MECHLORETHAMINE
     Indication: MYCOSIS FUNGOIDES
     Dosage: UNK
     Route: 061
     Dates: start: 20180709

REACTIONS (1)
  - Adverse drug reaction [Unknown]
